FAERS Safety Report 8537921-4 (Version None)
Quarter: 2012Q3

REPORT INFORMATION
  Report Type: 
  Country: None (occurrence: None)
  Receive Date: 20120725
  Receipt Date: 20120702
  Transmission Date: 20120928
  Serious: Yes (Hospitalization)
  Sender: FDA-Public Use
  Company Number: FR-GLAXOSMITHKLINE-B0812384A

PATIENT
  Sex: Female

DRUGS (12)
  1. NEURONTIN [Concomitant]
     Dosage: 100MG TWICE PER DAY
  2. VEPESID [Concomitant]
     Indication: T-CELL TYPE ACUTE LEUKAEMIA
     Dosage: 130MG PER DAY
     Route: 042
     Dates: start: 20120618, end: 20120620
  3. METHOTREXATE [Concomitant]
     Indication: T-CELL TYPE ACUTE LEUKAEMIA
     Route: 037
     Dates: start: 20120608, end: 20120615
  4. VALACYCLOVIR HYDROCHLORIDE [Concomitant]
     Dates: start: 20100901
  5. ATRIANCE [Suspect]
     Indication: T-CELL TYPE ACUTE LEUKAEMIA
     Dosage: 820MG SINGLE DOSE
     Route: 042
     Dates: start: 20120618, end: 20120622
  6. METHOTREXATE [Concomitant]
     Route: 037
     Dates: end: 20120615
  7. NALBUPHINE [Concomitant]
     Route: 042
     Dates: start: 20120624, end: 20120702
  8. CYCLOPHOSPHAMIDE [Concomitant]
     Dosage: 300MG PER DAY
     Route: 042
     Dates: start: 20120618, end: 20120620
  9. URSOLVAN [Concomitant]
     Route: 048
     Dates: start: 20120620
  10. CYTARABINE [Concomitant]
     Route: 037
     Dates: end: 20120615
  11. PURINETHOL [Concomitant]
     Dosage: 25MG PER DAY
     Route: 048
  12. METHYLPREDNISOLONE [Concomitant]
     Route: 037
     Dates: start: 20120608, end: 20120615

REACTIONS (10)
  - CHILLS [None]
  - PYREXIA [None]
  - PAIN IN EXTREMITY [None]
  - SENSORY DISTURBANCE [None]
  - MUSCLE TIGHTNESS [None]
  - HYPOAESTHESIA [None]
  - PARAESTHESIA [None]
  - GUILLAIN-BARRE SYNDROME [None]
  - POLLAKIURIA [None]
  - TACHYCARDIA [None]
